FAERS Safety Report 11097916 (Version 1)
Quarter: 2015Q2

REPORT INFORMATION
  Report Type: Spontaneous
  Country: JP (occurrence: JP)
  Receive Date: 20150507
  Receipt Date: 20150507
  Transmission Date: 20150821
  Serious: Yes (Death, Other)
  Sender: FDA-Public Use
  Company Number: JP-ELI_LILLY_AND_COMPANY-JP201505001518

PATIENT
  Sex: Female

DRUGS (3)
  1. GEMZAR [Suspect]
     Active Substance: GEMCITABINE HYDROCHLORIDE
     Indication: GALLBLADDER CANCER
     Route: 042
  2. HEPAREN [Concomitant]
     Indication: VENOUS THROMBOSIS LIMB
     Dosage: 10000 IU, QD
     Route: 065
  3. HEPAREN [Concomitant]
     Indication: PULMONARY EMBOLISM
     Dosage: 20000 IU, QD
     Route: 065

REACTIONS (4)
  - Embolism [Fatal]
  - Cerebral infarction [Fatal]
  - Cholangitis acute [Unknown]
  - Peritonitis bacterial [Unknown]
